FAERS Safety Report 7105799-1 (Version None)
Quarter: 2010Q4

REPORT INFORMATION
  Report Type: 
  Country: None (occurrence: None)
  Receive Date: 20101116
  Receipt Date: 20101109
  Transmission Date: 20110411
  Serious: Yes (Other)
  Sender: FDA-Public Use
  Company Number: PHHY2010CA16444

PATIENT
  Sex: Male

DRUGS (2)
  1. SANDOSTATIN LAR [Suspect]
     Indication: CARCINOID TUMOUR
     Dosage: 20 MG, EVERY 4 WEEKS
     Route: 030
     Dates: start: 20100308
  2. SANDOSTATIN LAR [Suspect]
     Dosage: 30 MG EVERY 4 WEEKS
     Route: 030

REACTIONS (10)
  - ASTHENIA [None]
  - BLOOD PRESSURE DECREASED [None]
  - DECREASED APPETITE [None]
  - DIARRHOEA [None]
  - HYPONATRAEMIA [None]
  - LOSS OF CONSCIOUSNESS [None]
  - PRESYNCOPE [None]
  - PYREXIA [None]
  - SYNCOPE [None]
  - WEIGHT DECREASED [None]
